FAERS Safety Report 22238459 (Version 1)
Quarter: 2023Q2

REPORT INFORMATION
  Report Type: Report from Study
  Country: US (occurrence: US)
  Receive Date: 20230421
  Receipt Date: 20230421
  Transmission Date: 20230721
  Serious: Yes (Other)
  Sender: FDA-Public Use
  Company Number: US-JNJFOC-20230434246

PATIENT
  Age: 26 Year
  Sex: Female
  Weight: 86.260 kg

DRUGS (8)
  1. INFLIXIMAB [Suspect]
     Active Substance: INFLIXIMAB
     Indication: Inflammatory bowel disease
     Route: 041
     Dates: start: 20150413, end: 2015
  2. STELARA [Concomitant]
     Active Substance: USTEKINUMAB
  3. STELARA [Concomitant]
     Active Substance: USTEKINUMAB
     Dates: start: 20220922
  4. RINVOQ [Concomitant]
     Active Substance: UPADACITINIB
  5. APRISO [Concomitant]
     Active Substance: MESALAMINE
  6. NEXIUM [Concomitant]
     Active Substance: ESOMEPRAZOLE MAGNESIUM
  7. METHOTREXATE [Concomitant]
     Active Substance: METHOTREXATE
  8. FOLIC ACID [Concomitant]
     Active Substance: FOLIC ACID

REACTIONS (2)
  - Abortion spontaneous [Recovered/Resolved]
  - Pregnancy [Unknown]

NARRATIVE: CASE EVENT DATE: 20220101
